FAERS Safety Report 9703932 (Version 1)
Quarter: 2013Q4

REPORT INFORMATION
  Report Type: Spontaneous
  Country: US (occurrence: US)
  Receive Date: 20131122
  Receipt Date: 20131122
  Transmission Date: 20140711
  Serious: No
  Sender: FDA-Public Use
  Company Number: US-009507513-1310USA006434

PATIENT
  Sex: Female

DRUGS (1)
  1. ZIOPTAN [Suspect]

REACTIONS (1)
  - Eye pain [Not Recovered/Not Resolved]
